FAERS Safety Report 5390314-3 (Version None)
Quarter: 2007Q3

REPORT INFORMATION
  Report Type: 
  Country: None (occurrence: None)
  Receive Date: 20070718
  Receipt Date: 20070706
  Transmission Date: 20080115
  Serious: Yes (Other)
  Sender: FDA-Public Use
  Company Number: US-PFIZER INC-2007021829

PATIENT
  Sex: Female
  Weight: 90.7 kg

DRUGS (14)
  1. DETROL LA [Suspect]
     Indication: POLLAKIURIA
     Dates: start: 20070318, end: 20070319
  2. ANTIBIOTICS [Concomitant]
  3. ALL OTHER THERAPEUTIC PRODUCTS [Concomitant]
  4. PREDNISOLONE [Concomitant]
  5. METRONIDAZOLE [Concomitant]
  6. WARFARIN SODIUM [Concomitant]
  7. ALL OTHER THERAPEUTIC PRODUCTS [Concomitant]
  8. SPIRIVA [Concomitant]
     Route: 055
  9. WARFARIN SODIUM [Concomitant]
  10. ALLOPURINOL [Concomitant]
  11. VYTORIN [Concomitant]
  12. SOTALOL HYDROCHLORIDE [Concomitant]
  13. GLIPIZIDE [Concomitant]
  14. ACTOS [Concomitant]
     Dates: start: 20050101

REACTIONS (3)
  - ATRIAL FIBRILLATION [None]
  - EXPIRED DRUG ADMINISTERED [None]
  - PNEUMONIA [None]
